APPROVED DRUG PRODUCT: TWYNSTA
Active Ingredient: AMLODIPINE BESYLATE; TELMISARTAN
Strength: EQ 10MG BASE;80MG **Federal Register determination that product was not discontinued or withdrawn for safety or effectiveness reasons**
Dosage Form/Route: TABLET;ORAL
Application: N022401 | Product #004
Applicant: BOEHRINGER INGELHEIM PHARMACEUTICALS INC
Approved: Oct 16, 2009 | RLD: Yes | RS: No | Type: DISCN